FAERS Safety Report 9179974 (Version 1)
Quarter: 2012Q4

REPORT INFORMATION
  Report Type: 
  Country: US (occurrence: US)
  Receive Date: 20121029
  Receipt Date: 20121029
  Transmission Date: 20130627
  Serious: Yes (Hospitalization, Other)
  Sender: FDA-Public Use
  Company Number: US-009507513-1103USA00998

PATIENT

DRUGS (8)
  1. FOSAMAX [Suspect]
     Indication: OSTEOPOROSIS
     Dosage: 70 mg, qw
     Route: 048
     Dates: start: 20030703, end: 20080118
  2. FOSAMAX [Suspect]
     Indication: OSTEOPOROSIS
     Dosage: 70 mg, qw
     Route: 048
     Dates: start: 20080318
  3. THERAPY UNSPECIFIED [Concomitant]
  4. ASPIRIN [Concomitant]
     Indication: ANTICOAGULANT THERAPY
     Route: 048
     Dates: start: 1991
  5. PLAVIX [Concomitant]
     Indication: THROMBOSIS
     Route: 048
     Dates: start: 2001
  6. LIPITOR [Concomitant]
     Indication: BLOOD CHOLESTEROL
     Route: 048
     Dates: start: 2001
  7. TOPROL XL TABLETS [Concomitant]
     Indication: BLOOD PRESSURE
     Route: 048
     Dates: start: 2001
  8. PRILOSEC [Concomitant]
     Indication: GASTROOESOPHAGEAL REFLUX DISEASE
     Route: 048
     Dates: start: 1996

REACTIONS (56)
  - Hip fracture [Unknown]
  - Vertebroplasty [Unknown]
  - Gastrectomy [Unknown]
  - Cerebrovascular accident [Unknown]
  - Spinal compression fracture [Unknown]
  - Renal surgery [Unknown]
  - Pelvic fracture [Unknown]
  - Hip arthroplasty [Unknown]
  - Joint dislocation [Unknown]
  - Radius fracture [Unknown]
  - Arthropathy [Unknown]
  - Adverse event [Unknown]
  - Fall [Unknown]
  - Osteonecrosis of jaw [Unknown]
  - Constipation [Unknown]
  - Concussion [Unknown]
  - Abscess [Unknown]
  - Bronchitis [Unknown]
  - Oral infection [Unknown]
  - Fracture [Unknown]
  - Impaired healing [Unknown]
  - Rheumatoid arthritis [Unknown]
  - Depression [Not Recovered/Not Resolved]
  - Fistula discharge [Unknown]
  - Tooth disorder [Unknown]
  - Blood iron decreased [Unknown]
  - Pain [Not Recovered/Not Resolved]
  - Sleep disorder [Unknown]
  - Fall [Unknown]
  - Gait disturbance [Unknown]
  - Arthritis [Unknown]
  - Amnesia [Unknown]
  - Dry mouth [Unknown]
  - Bone disorder [Unknown]
  - Osteoarthritis [Unknown]
  - Hyperlipidaemia [Unknown]
  - Panic attack [Unknown]
  - Wrist fracture [Unknown]
  - Osteitis [Unknown]
  - Lymphadenopathy [Unknown]
  - Tooth disorder [Unknown]
  - Tooth disorder [Unknown]
  - Abscess [Unknown]
  - Arthropathy [Unknown]
  - Jaw disorder [Unknown]
  - Impaired healing [Unknown]
  - Arteriosclerosis coronary artery [Unknown]
  - Hypotension [Unknown]
  - Pharyngeal erythema [Unknown]
  - Chronic obstructive pulmonary disease [Not Recovered/Not Resolved]
  - Hysterectomy [Unknown]
  - Back pain [Not Recovered/Not Resolved]
  - Drug hypersensitivity [Unknown]
  - Gastric ulcer [Unknown]
  - Hypersensitivity [Unknown]
  - Osteomyelitis [Unknown]
